FAERS Safety Report 5463612-2 (Version None)
Quarter: 2007Q3

REPORT INFORMATION
  Report Type: 
  Country: None (occurrence: None)
  Receive Date: 20070919
  Receipt Date: 20070904
  Transmission Date: 20080115
  Serious: Yes (Hospitalization)
  Sender: FDA-Public Use
  Company Number: 6186/6037722

PATIENT
  Age: 78 Year
  Sex: Female

DRUGS (4)
  1. METFORMIN HCL [Suspect]
     Indication: DIABETES MELLITUS
     Dates: start: 20061019
  2. BLINDED LIRAGLUTIDE [Suspect]
     Dates: start: 20061221
  3. PAXIL [Concomitant]
  4. TOPROL-XL [Concomitant]

REACTIONS (5)
  - ANOREXIA [None]
  - CHEST PAIN [None]
  - DISCOMFORT [None]
  - DYSPNOEA [None]
  - MALAISE [None]
